FAERS Safety Report 9324849 (Version 3)
Quarter: 2013Q2

REPORT INFORMATION
  Report Type: Report from Study
  Country: CA (occurrence: CA)
  Receive Date: 20130603
  Receipt Date: 20130612
  Transmission Date: 20140414
  Serious: Yes (Hospitalization, Other)
  Sender: FDA-Public Use
  Company Number: PHHY2013CA055805

PATIENT
  Age: 64 Year
  Sex: Female

DRUGS (9)
  1. GLEEVEC [Suspect]
     Indication: CHRONIC MYELOID LEUKAEMIA
     Dosage: 400 MG, QD
     Dates: start: 200805
  2. GLEEVEC [Suspect]
     Dosage: 200 MG, DAILY
     Route: 048
     Dates: start: 20080606
  3. ANTIHYPERTENSIVES [Concomitant]
     Dosage: UNK UKN, UNK
  4. AMLODIPINE [Concomitant]
     Dosage: 10 MG,HS
  5. TELMISARTAN [Concomitant]
     Dosage: UNK UKN,80/25, QD
     Route: 048
  6. CLOPIDOGREL [Concomitant]
     Dosage: 75 MG, QD
     Route: 048
  7. BISOPROLOL [Concomitant]
     Dosage: 5 MG, QD
     Route: 048
  8. LIPITOR [Concomitant]
     Dosage: 10 MG, QD
     Route: 048
  9. INSULIN [Concomitant]
     Dosage: UNK UKN, UNK

REACTIONS (9)
  - Coronary artery disease [Recovered/Resolved]
  - Loss of consciousness [Recovered/Resolved]
  - Cluster headache [Recovered/Resolved]
  - Migraine [Recovered/Resolved]
  - Acute myocardial infarction [Recovered/Resolved]
  - Headache [Recovered/Resolved]
  - Convulsion [Recovered/Resolved]
  - Photosensitivity reaction [Unknown]
  - Pain [Unknown]
